FAERS Safety Report 23698073 (Version 2)
Quarter: 2024Q2

REPORT INFORMATION
  Report Type: Report from Study
  Country: CH (occurrence: CH)
  Receive Date: 20240402
  Receipt Date: 20240613
  Transmission Date: 20240716
  Serious: Yes (Hospitalization)
  Sender: FDA-Public Use
  Company Number: CH-BAXTER-2024BAX015944

PATIENT
  Age: 58 Year
  Sex: Male
  Weight: 65.8 kg

DRUGS (20)
  1. MESNA [Suspect]
     Active Substance: MESNA
     Indication: Chemotherapy side effect prophylaxis
     Dosage: 600 MG, EVERY 1 DAYS
     Route: 065
     Dates: start: 20240213
  2. CYCLOPHOSPHAMIDE [Suspect]
     Active Substance: CYCLOPHOSPHAMIDE
     Indication: Diffuse large B-cell lymphoma
     Dosage: 1340 MG, EVERY 3 WEEKS, ONGOING
     Route: 042
     Dates: start: 20240213
  3. DOXORUBICIN [Suspect]
     Active Substance: DOXORUBICIN
     Indication: Diffuse large B-cell lymphoma
     Dosage: 90 MG, EVERY 3 WEEKS, ONGOING
     Route: 042
     Dates: start: 20240213
  4. EPCORITAMAB [Suspect]
     Active Substance: EPCORITAMAB
     Indication: Diffuse large B-cell lymphoma
     Dosage: 48 MG C2- 4, D1, 8 AND 15, LAST DOSE PRIOR TO EVENT 12 MAR 2024, EVERY 1 WEEKS, ONGOING
     Route: 058
     Dates: start: 20240305
  5. EPCORITAMAB [Suspect]
     Active Substance: EPCORITAMAB
     Dosage: 0.16 MG, PRIMING DOSE; C1, D1, TOTAL
     Route: 058
     Dates: start: 20240213, end: 20240213
  6. EPCORITAMAB [Suspect]
     Active Substance: EPCORITAMAB
     Dosage: 0.8 MG, INTERMEDIATE DOSE, C1, D8, TOTAL
     Route: 058
     Dates: start: 20240220, end: 20240220
  7. EPCORITAMAB [Suspect]
     Active Substance: EPCORITAMAB
     Dosage: 48 MG FULL DOSE, C1, D15, TOTAL
     Route: 058
     Dates: start: 20240227, end: 20240227
  8. VINCRISTINE [Suspect]
     Active Substance: VINCRISTINE
     Indication: Diffuse large B-cell lymphoma
     Dosage: 2 MG, EVERY 3 WEEKS, ONGOING
     Route: 042
     Dates: start: 20240213
  9. RITUXIMAB [Suspect]
     Active Substance: RITUXIMAB
     Indication: Diffuse large B-cell lymphoma
     Dosage: 670 MG, EVERY 3 WEEKS, ONGOING
     Route: 042
     Dates: start: 20240213
  10. PREDNISONE [Suspect]
     Active Substance: PREDNISONE
     Indication: Diffuse large B-cell lymphoma
     Dosage: 100 MG DAILY C1-6, DAY 1-5, EVERY 1 DAYS, ONGOING
     Route: 048
     Dates: start: 20240213
  11. PANTOPRAZOLE SODIUM [Concomitant]
     Active Substance: PANTOPRAZOLE SODIUM
     Indication: Prophylaxis against gastrointestinal ulcer
     Dosage: 40 MG, CONTINUOUS
     Route: 065
     Dates: start: 20240207
  12. PALONOSETRON [Concomitant]
     Active Substance: PALONOSETRON
     Indication: Prophylaxis of nausea and vomiting
     Dosage: 0.25 MG, EVERY 1 DAYS
     Route: 065
     Dates: start: 20240213
  13. CLEMASTINE FUMARATE [Concomitant]
     Active Substance: CLEMASTINE FUMARATE
     Indication: Premedication
     Dosage: 2 MG/2ML, EVERY 1 DAYS
     Route: 065
     Dates: start: 20240213
  14. CLEMASTINE FUMARATE [Concomitant]
     Active Substance: CLEMASTINE FUMARATE
     Indication: Prophylaxis
  15. DAFALGAN [Concomitant]
     Active Substance: ACETAMINOPHEN
     Indication: Prophylaxis
     Dosage: 1 G, EVERY 1 DAYS
     Route: 065
     Dates: start: 20240213
  16. PEGFILGRASTIM [Concomitant]
     Active Substance: PEGFILGRASTIM
     Indication: Prophylaxis
     Dosage: 6 MG/0.6 ML
     Route: 065
     Dates: start: 20240213, end: 20240213
  17. METHYLPREDNISOLONE SODIUM SUCCINATE [Concomitant]
     Active Substance: METHYLPREDNISOLONE SODIUM SUCCINATE
     Indication: Antiemetic supportive care
     Dosage: 100 MG
     Route: 065
     Dates: start: 20240213
  18. Novalgin [Concomitant]
     Indication: Abdominal pain upper
     Dosage: 500 MG, 4/DAYS
     Route: 065
     Dates: start: 20240212
  19. VALTREX [Concomitant]
     Active Substance: VALACYCLOVIR HYDROCHLORIDE
     Indication: Antiviral prophylaxis
     Dosage: 500 MG, 2/DAYS
     Route: 065
     Dates: start: 20240214
  20. BACTRIM [Concomitant]
     Active Substance: SULFAMETHOXAZOLE\TRIMETHOPRIM
     Indication: Antibiotic prophylaxis
     Dosage: 800/160, 3/WEEKS
     Route: 065

REACTIONS (1)
  - Campylobacter infection [Recovered/Resolved]

NARRATIVE: CASE EVENT DATE: 20240314
